FAERS Safety Report 9184613 (Version 1)
Quarter: 2013Q1

REPORT INFORMATION
  Report Type: Spontaneous
  Country: US (occurrence: US)
  Receive Date: 20130324
  Receipt Date: 20130324
  Transmission Date: 20140127
  Serious: Yes (Hospitalization, Other)
  Sender: FDA-Public Use
  Company Number: US-AMGEN-USASP2013018778

PATIENT
  Age: 35 Year
  Sex: Female

DRUGS (1)
  1. ENBREL [Suspect]
     Indication: PSORIASIS
     Dosage: 50 MG, QWK
     Dates: start: 1998, end: 201207

REACTIONS (2)
  - Benign hydatidiform mole [Recovered/Resolved]
  - Abortion spontaneous [Recovered/Resolved]
